FAERS Safety Report 5618331-6 (Version None)
Quarter: 2008Q1

REPORT INFORMATION
  Report Type: 
  Country: None (occurrence: None)
  Receive Date: 20080207
  Receipt Date: 20080201
  Transmission Date: 20080703
  Serious: Yes (Hospitalization)
  Sender: FDA-Public Use
  Company Number: IT-GENENTECH-253708

PATIENT
  Sex: Male

DRUGS (1)
  1. RAPTIVA [Suspect]
     Indication: PSORIATIC ARTHROPATHY
     Dosage: 0.7 ML, 1/WEEK
     Route: 058
     Dates: start: 20050630, end: 20071212

REACTIONS (2)
  - HYPERPYREXIA [None]
  - PULMONARY EMBOLISM [None]
